FAERS Safety Report 6404309-1 (Version None)
Quarter: 2009Q4

REPORT INFORMATION
  Report Type: 
  Country: None (occurrence: None)
  Receive Date: 20091016
  Receipt Date: 20091014
  Transmission Date: 20100525
  Serious: Yes (Other)
  Sender: FDA-Public Use
  Company Number: B0598080A

PATIENT
  Sex: Female

DRUGS (1)
  1. AMOXICILLIN AND CLAVULANATE POTASSIUM [Suspect]
     Dosage: 1G TWICE PER DAY
     Route: 048
     Dates: start: 20090615, end: 20090623

REACTIONS (8)
  - GAMMA-GLUTAMYLTRANSFERASE INCREASED [None]
  - HAEMATURIA [None]
  - HEPATIC ENZYME INCREASED [None]
  - LEUKOCYTURIA [None]
  - PRURITUS [None]
  - RASH MACULO-PAPULAR [None]
  - RASH PRURITIC [None]
  - VAGINAL INFECTION [None]
